FAERS Safety Report 4316000-6 (Version None)
Quarter: 2004Q1

REPORT INFORMATION
  Report Type: 
  Country: None (occurrence: None)
  Receive Date: 20040310
  Receipt Date: 20040223
  Transmission Date: 20041129
  Serious: Yes (Death)
  Sender: FDA-Public Use
  Company Number: 04P-144-0246804-00

PATIENT
  Age: 61 Year
  Sex: Male

DRUGS (7)
  1. KALETRA [Suspect]
     Indication: HIV INFECTION
     Dosage: 3 CAPSULES, 2 IN 1 D, ORAL
     Route: 048
     Dates: start: 20020815, end: 20021118
  2. LAMIVUDINE [Concomitant]
  3. TENOFOVIR [Concomitant]
  4. SEPTRIM FORTE [Concomitant]
  5. GANCICLOVIR [Concomitant]
  6. LORAZEPAM [Concomitant]
  7. IPRATROPIUM BROMIDE [Concomitant]

REACTIONS (3)
  - ENCEPHALITIS CYTOMEGALOVIRUS [None]
  - PROGRESSIVE MULTIFOCAL LEUKOENCEPHALOPATHY [None]
  - WEIGHT DECREASED [None]
